FAERS Safety Report 22302605 (Version 3)
Quarter: 2023Q2

REPORT INFORMATION
  Report Type: Spontaneous
  Country: IN (occurrence: IN)
  Receive Date: 20230510
  Receipt Date: 20230519
  Transmission Date: 20230721
  Serious: Yes (Other)
  Sender: FDA-Public Use
  Company Number: IN-MLMSERVICE-20230501-4254581-1

PATIENT
  Age: 65 Year
  Sex: Male

DRUGS (3)
  1. TRIAMCINOLONE ACETONIDE [Suspect]
     Active Substance: TRIAMCINOLONE ACETONIDE
     Indication: Cystoid macular oedema
     Dosage: 4 MG/ 0.1 ML, 1X
     Route: 031
  2. MOXIFLOXACIN [Concomitant]
     Active Substance: MOXIFLOXACIN
     Indication: Cystoid macular oedema
     Dosage: UNK
     Route: 061
  3. NEPAFENAC [Concomitant]
     Active Substance: NEPAFENAC
     Indication: Cystoid macular oedema
     Dosage: UNK
     Route: 061

REACTIONS (4)
  - Pseudoendophthalmitis [Recovering/Resolving]
  - Visual impairment [Recovering/Resolving]
  - Abnormal sensation in eye [Recovering/Resolving]
  - Vitreous haze [Recovering/Resolving]
